FAERS Safety Report 16836009 (Version 1)
Quarter: 2019Q3

REPORT INFORMATION
  Report Type: Spontaneous
  Country: CN (occurrence: CN)
  Receive Date: 20190920
  Receipt Date: 20190920
  Transmission Date: 20191005
  Serious: Yes (Other)
  Sender: FDA-Public Use
  Company Number: CN-BAXTER-2019BAX018092

PATIENT
  Age: 61 Year
  Sex: Male
  Weight: 58 kg

DRUGS (9)
  1. POTASSIUM CHLORIDE. [Suspect]
     Active Substance: POTASSIUM CHLORIDE
     Indication: MINERAL SUPPLEMENTATION
  2. MAGNESIUM SULFATE. [Suspect]
     Active Substance: MAGNESIUM SULFATE
     Indication: ELECTROLYTE IMBALANCE
     Dosage: 0.9% SODIUM CHLORIDE INJECTION 500ML + MAGNESIUM SULFATE INJECTION 2.5G + POTASSIUM CHLORIDE INJECTI
     Route: 041
     Dates: start: 20190904, end: 20190904
  3. MEDIUM AND LONG CHAIN FAT EMULSION INJECTION (C8-24) [Suspect]
     Active Substance: GLYCERIN\MEDIUM-CHAIN TRIGLYCERIDES\PHOSPHOLIPID\SOYBEAN OIL
     Indication: NUTRITIONAL SUPPLEMENTATION
     Dosage: 40 DROPS/MIN
     Route: 041
     Dates: start: 20190904, end: 20190904
  4. POTASSIUM CHLORIDE. [Suspect]
     Active Substance: POTASSIUM CHLORIDE
     Indication: ELECTROLYTE IMBALANCE
     Dosage: 0.9% SODIUM CHLORIDE INJECTION 500ML + MAGNESIUM SULFATE INJECTION 2.5G + POTASSIUM CHLORIDE INJECTI
     Route: 041
     Dates: start: 20190904, end: 20190904
  5. MAGNESIUM SULFATE. [Suspect]
     Active Substance: MAGNESIUM SULFATE
     Indication: MINERAL SUPPLEMENTATION
  6. POTASSIUM CHLORIDE. [Suspect]
     Active Substance: POTASSIUM CHLORIDE
     Indication: PRODUCT USED FOR UNKNOWN INDICATION
     Route: 065
     Dates: start: 20190903
  7. MAGNESIUM CHLORIDE. [Suspect]
     Active Substance: MAGNESIUM CHLORIDE
     Indication: PRODUCT USED FOR UNKNOWN INDICATION
     Route: 065
     Dates: start: 20190903
  8. 0.9% SODIUM CHLORIDE INJECTION [Suspect]
     Active Substance: SODIUM CHLORIDE
     Indication: MEDICATION DILUTION
     Dosage: 0.9% SODIUM CHLORIDE INJECTION 500ML + MAGNESIUM SULFATE INJECTION 2.5G + POTASSIUM CHLORIDE INJECTI
     Route: 041
     Dates: start: 20190904, end: 20190904
  9. COMPOUND AMINO ACID (18AA) [Suspect]
     Active Substance: AMINO ACIDS
     Indication: NUTRITIONAL SUPPLEMENTATION
     Dosage: 40 DROPS/MIN
     Route: 041
     Dates: start: 20190904, end: 20190904

REACTIONS (5)
  - Dyspnoea [Recovering/Resolving]
  - Chills [Recovering/Resolving]
  - Sinus tachycardia [Unknown]
  - Impulse-control disorder [Unknown]
  - Palpitations [Recovering/Resolving]

NARRATIVE: CASE EVENT DATE: 20190904
